FAERS Safety Report 26065096 (Version 1)
Quarter: 2025Q4

REPORT INFORMATION
  Report Type: Spontaneous
  Country: BR (occurrence: BR)
  Receive Date: 20251119
  Receipt Date: 20251119
  Transmission Date: 20260118
  Serious: Yes (Other)
  Sender: AMGEN
  Company Number: BR-AMGEN-BRASP2025226268

PATIENT

DRUGS (1)
  1. RITUXIMAB [Suspect]
     Active Substance: RITUXIMAB
     Indication: Sjogren^s syndrome
     Dosage: UNK
     Route: 065

REACTIONS (6)
  - Sjogren^s syndrome [Unknown]
  - Anxiety [Unknown]
  - Depression [Unknown]
  - Quality of life decreased [Unknown]
  - Malaise [Unknown]
  - Off label use [Unknown]
